APPROVED DRUG PRODUCT: DENAVIR
Active Ingredient: PENCICLOVIR
Strength: 1%
Dosage Form/Route: CREAM;TOPICAL
Application: N020629 | Product #001 | TE Code: AB
Applicant: MYLAN PHARMACEUTICALS INC
Approved: Sep 24, 1996 | RLD: Yes | RS: Yes | Type: RX